FAERS Safety Report 21356761 (Version 1)
Quarter: 2022Q3

REPORT INFORMATION
  Report Type: Spontaneous
  Country: US (occurrence: None)
  Receive Date: 20220920
  Receipt Date: 20220920
  Transmission Date: 20221026
  Serious: No
  Sender: FDA-Public Use
  Company Number: None

PATIENT
  Age: 61 Year
  Sex: Female
  Weight: 75.84 kg

DRUGS (13)
  1. TEMOZOLOMIDE [Suspect]
     Active Substance: TEMOZOLOMIDE
     Indication: Brain neoplasm malignant
     Dosage: FREQUENCY : DAILY;?
     Route: 048
  2. ACETAMINOPHEN [Concomitant]
     Active Substance: ACETAMINOPHEN
  3. AMLODIPINE [Concomitant]
     Active Substance: AMLODIPINE BESYLATE
  4. ATIVAN [Concomitant]
     Active Substance: LORAZEPAM
  5. CALCIUM CARBONATE [Concomitant]
     Active Substance: CALCIUM CARBONATE
  6. CELEXA [Concomitant]
     Active Substance: CITALOPRAM HYDROBROMIDE
  7. CLONIDINE [Concomitant]
     Active Substance: CLONIDINE
  8. VITAMIN D3 [Concomitant]
     Active Substance: CHOLECALCIFEROL
  9. KEPPRA [Concomitant]
     Active Substance: LEVETIRACETAM
  10. LISINOPRIL [Concomitant]
     Active Substance: LISINOPRIL
  11. VITAMINS [Concomitant]
     Active Substance: VITAMINS
  12. MVASI [Concomitant]
     Active Substance: BEVACIZUMAB-AWWB
  13. ZETIA [Concomitant]
     Active Substance: EZETIMIBE

REACTIONS (1)
  - Hospice care [None]
